FAERS Safety Report 16958458 (Version 2)
Quarter: 2019Q4

REPORT INFORMATION
  Report Type: Spontaneous
  Country: US (occurrence: US)
  Receive Date: 20191024
  Receipt Date: 20191028
  Transmission Date: 20200122
  Serious: Yes (Disabling, Other)
  Sender: FDA-Public Use
  Company Number: US-SA-2019SA290112

PATIENT
  Age: 72 Year
  Sex: Female

DRUGS (1)
  1. TRIAMCINOLONE ACETONIDE. [Suspect]
     Active Substance: TRIAMCINOLONE ACETONIDE
     Indication: ORBITAL DECOMPRESSION
     Dosage: UNK, UNK
     Route: 065

REACTIONS (7)
  - Cerebrovascular accident [Unknown]
  - Retinal artery occlusion [Not Recovered/Not Resolved]
  - Embolism [Unknown]
  - Pupillary deformity [Unknown]
  - Visual acuity reduced [Unknown]
  - Blindness [Not Recovered/Not Resolved]
  - Corneal oedema [Recovered/Resolved]
